FAERS Safety Report 18904066 (Version 1)
Quarter: 2021Q1

REPORT INFORMATION
  Report Type: Spontaneous
  Country: GR (occurrence: GR)
  Receive Date: 20210217
  Receipt Date: 20210217
  Transmission Date: 20210420
  Serious: Yes (Other)
  Sender: FDA-Public Use
  Company Number: GR-AMGEN-GRCSP2021022149

PATIENT
  Age: 44 Year
  Sex: Female

DRUGS (4)
  1. THYROXINE [Concomitant]
     Active Substance: LEVOTHYROXINE
     Dosage: 75 MICROGRAM, QD
  2. CINACALCET HCL [Suspect]
     Active Substance: CINACALCET HYDROCHLORIDE
     Dosage: 90 MILLIGRAM, 4 TIMES DAILY
     Route: 065
  3. CINACALCET HCL [Suspect]
     Active Substance: CINACALCET HYDROCHLORIDE
     Indication: HYPERPARATHYROIDISM PRIMARY
     Dosage: 90 MILLIGRAM, BID
     Route: 065
     Dates: start: 20100528, end: 20100929
  4. IRON [Concomitant]
     Active Substance: IRON
     Dosage: UNK

REACTIONS (4)
  - Phosphaturic mesenchymal tumour [Unknown]
  - Hungry bone syndrome [Unknown]
  - Parathyroid tumour benign [Unknown]
  - Hair follicle tumour benign [Unknown]
